FAERS Safety Report 12345686 (Version 2)
Quarter: 2016Q2

REPORT INFORMATION
  Report Type: Spontaneous
  Country: NL (occurrence: NL)
  Receive Date: 20160509
  Receipt Date: 20160510
  Transmission Date: 20160815
  Serious: Yes (Other)
  Sender: FDA-Public Use
  Company Number: NL-009507513-1605NLD003855

PATIENT
  Age: 54 Year
  Sex: Female

DRUGS (1)
  1. SYNAPAUSE-E3 [Suspect]
     Active Substance: ESTRADIOL
     Indication: VULVOVAGINAL DRYNESS
     Dosage: 0.5 MG, BIM
     Route: 067
     Dates: start: 20151002, end: 20160407

REACTIONS (1)
  - Deafness [Not Recovered/Not Resolved]

NARRATIVE: CASE EVENT DATE: 20151101
